FAERS Safety Report 14832047 (Version 2)
Quarter: 2018Q2

REPORT INFORMATION
  Report Type: Spontaneous
  Country: JP (occurrence: JP)
  Receive Date: 20180501
  Receipt Date: 20180614
  Transmission Date: 20180711
  Serious: Yes (Other)
  Sender: FDA-Public Use
  Company Number: JP-MYLANLABS-2018M1028527

PATIENT
  Sex: Male
  Weight: 50 kg

DRUGS (3)
  1. PRODIF [Suspect]
     Active Substance: FOSFLUCONAZOLE
     Indication: PRODUCT USED FOR UNKNOWN INDICATION
     Dosage: 800 MG, QD
     Route: 042
     Dates: start: 20180404, end: 20180405
  2. VANCOMYCIN                         /00314402/ [Suspect]
     Active Substance: VANCOMYCIN
     Indication: PRODUCT USED FOR UNKNOWN INDICATION
     Dosage: 0.75 G, QD
     Route: 042
     Dates: start: 20180205
  3. PRODIF [Suspect]
     Active Substance: FOSFLUCONAZOLE
     Dosage: 400 MG, QD
     Route: 042
     Dates: start: 20180406

REACTIONS (2)
  - Shunt infection [Unknown]
  - Erythema [Unknown]
